FAERS Safety Report 24289953 (Version 7)
Quarter: 2024Q4

REPORT INFORMATION
  Report Type: Report from Study
  Country: BE (occurrence: BE)
  Receive Date: 20240906
  Receipt Date: 20241224
  Transmission Date: 20250115
  Serious: Yes (Hospitalization, Other)
  Sender: EXELIXIS
  Company Number: BE-IPSEN Group, Research and Development-2024-06188

PATIENT

DRUGS (19)
  1. CABOZANTINIB [Suspect]
     Active Substance: CABOZANTINIB
     Indication: Renal cell carcinoma
     Dosage: 40 MG, QD
     Route: 065
     Dates: start: 20240222, end: 20240320
  2. CABOZANTINIB [Suspect]
     Active Substance: CABOZANTINIB
     Dosage: 20 MG, QD
     Route: 065
     Dates: start: 20240415, end: 20240822
  3. CABOZANTINIB [Suspect]
     Active Substance: CABOZANTINIB
     Dosage: 20 MG, QD
     Route: 065
     Dates: start: 20240830, end: 20240904
  4. CABOZANTINIB [Suspect]
     Active Substance: CABOZANTINIB
     Dosage: 20 MG, QD
     Route: 065
     Dates: start: 20240925, end: 20241112
  5. CABOZANTINIB [Suspect]
     Active Substance: CABOZANTINIB
     Dosage: 40/20/40/20(ALTERNATING)
     Route: 065
     Dates: start: 20241118, end: 20241203
  6. NIVOLUMAB [Concomitant]
     Active Substance: NIVOLUMAB
     Dosage: 240 MG
     Dates: start: 20240222
  7. NIVOLUMAB [Concomitant]
     Active Substance: NIVOLUMAB
     Dosage: 240 MG
     Dates: start: 20240307
  8. NIVOLUMAB [Concomitant]
     Active Substance: NIVOLUMAB
     Dosage: 240 MG
     Dates: start: 20240321
  9. NIVOLUMAB [Concomitant]
     Active Substance: NIVOLUMAB
     Dosage: 240 MG
     Dates: start: 20240404
  10. NIVOLUMAB [Concomitant]
     Active Substance: NIVOLUMAB
     Dosage: 240 MG
     Dates: start: 20240418
  11. NIVOLUMAB [Concomitant]
     Active Substance: NIVOLUMAB
     Dosage: 240 MG
     Dates: start: 20240502
  12. NIVOLUMAB [Concomitant]
     Active Substance: NIVOLUMAB
     Dosage: 240 MG
     Dates: start: 20240516
  13. NIVOLUMAB [Concomitant]
     Active Substance: NIVOLUMAB
     Dosage: 240 MG
     Dates: start: 20240530
  14. NIVOLUMAB [Concomitant]
     Active Substance: NIVOLUMAB
     Dosage: 240 MG
     Dates: start: 20240613
  15. NIVOLUMAB [Concomitant]
     Active Substance: NIVOLUMAB
     Dosage: 240 MG
     Dates: start: 20240627
  16. NIVOLUMAB [Concomitant]
     Active Substance: NIVOLUMAB
     Dosage: 240 MG
     Dates: start: 20240711
  17. NIVOLUMAB [Concomitant]
     Active Substance: NIVOLUMAB
     Dosage: 240 MG
     Dates: start: 20240725
  18. NIVOLUMAB [Concomitant]
     Active Substance: NIVOLUMAB
     Dosage: 240 MG
     Dates: start: 20240808
  19. INNOHEP [Concomitant]
     Active Substance: TINZAPARIN SODIUM
     Indication: Prophylaxis
     Dosage: 4500 IU DAILY
     Route: 058
     Dates: start: 20240822, end: 20240826

REACTIONS (10)
  - Hepatotoxicity [Not Recovered/Not Resolved]
  - Neutropenia [Not Recovered/Not Resolved]
  - Chronic kidney disease [Unknown]
  - Nephritis [Recovered/Resolved]
  - Anaemia [Recovered/Resolved]
  - Gastrooesophageal reflux disease [Recovered/Resolved]
  - Blister [Not Recovered/Not Resolved]
  - Dysphonia [Not Recovered/Not Resolved]
  - Fatigue [Not Recovered/Not Resolved]
  - Hypophosphataemia [Recovering/Resolving]

NARRATIVE: CASE EVENT DATE: 20240313
